FAERS Safety Report 19481354 (Version 1)
Quarter: 2021Q2

REPORT INFORMATION
  Report Type: Spontaneous
  Country: US (occurrence: US)
  Receive Date: 20210630
  Receipt Date: 20210630
  Transmission Date: 20210717
  Serious: Yes (Life-Threatening, Disabling)
  Sender: FDA-Public Use
  Company Number: None

PATIENT
  Age: 64 Year
  Sex: Female
  Weight: 65.77 kg

DRUGS (12)
  1. CENTRUM SILVER MULTI VITAMIN [Concomitant]
  2. CITRACAL CALCIUM [Concomitant]
  3. ESTHER C [Concomitant]
  4. BIOITN [Concomitant]
  5. NP THYROID [Suspect]
     Active Substance: LEVOTHYROXINE\LIOTHYRONINE
     Dosage: ?          QUANTITY:1 DF DOSAGE FORM;?
  6. LEXAPRO [Concomitant]
     Active Substance: ESCITALOPRAM OXALATE
  7. NP THYROID [Suspect]
     Active Substance: LEVOTHYROXINE\LIOTHYRONINE
     Indication: AUTOIMMUNE THYROIDITIS
     Dosage: ?          QUANTITY:1 DF DOSAGE FORM;?
     Route: 048
     Dates: start: 20200501, end: 202006
  8. GLUCOSAMINE SULFATE [Concomitant]
     Active Substance: GLUCOSAMINE SULFATE
  9. OMEGA 3 [Concomitant]
     Active Substance: OMEGA-3 FATTY ACIDS
  10. CLARITIN [Concomitant]
     Active Substance: LORATADINE
  11. VITAMIN D3 [Concomitant]
     Active Substance: CHOLECALCIFEROL
  12. VITAMIN B [Concomitant]
     Active Substance: VITAMIN B

REACTIONS (11)
  - Chest pain [None]
  - Dizziness [None]
  - Abdominal pain upper [None]
  - Headache [None]
  - Product substitution issue [None]
  - Muscle spasms [None]
  - Alopecia [None]
  - Temperature intolerance [None]
  - Feeling hot [None]
  - Insomnia [None]
  - Recalled product administered [None]

NARRATIVE: CASE EVENT DATE: 20200501
